FAERS Safety Report 16761159 (Version 1)
Quarter: 2019Q3

REPORT INFORMATION
  Report Type: Spontaneous
  Country: US (occurrence: US)
  Receive Date: 20190830
  Receipt Date: 20190830
  Transmission Date: 20191005
  Serious: Yes (Other)
  Sender: FDA-Public Use
  Company Number: US-ANIPHARMA-2019-US-003139

PATIENT
  Age: 70 Year
  Sex: Female
  Weight: 91.63 kg

DRUGS (18)
  1. ANASTROZOLE. [Suspect]
     Active Substance: ANASTROZOLE
     Indication: BREAST CANCER METASTATIC
     Dosage: DAILY
     Route: 048
     Dates: start: 201308, end: 20180717
  2. FENTANYL. [Concomitant]
     Active Substance: FENTANYL
     Dosage: 50 MG PATCH
  3. VENLAFAXINE [Concomitant]
     Active Substance: VENLAFAXINE HYDROCHLORIDE
     Route: 048
     Dates: start: 2013
  4. LEVOTHYROXINE. [Concomitant]
     Active Substance: LEVOTHYROXINE
     Dosage: DAILT
     Route: 048
     Dates: start: 2013
  5. LOVASTATIN. [Concomitant]
     Active Substance: LOVASTATIN
     Dosage: UNK
  6. GABAPENTIN. [Concomitant]
     Active Substance: GABAPENTIN
     Dosage: 3 A DAY BY MOUTH
  7. ASPIRIN. [Concomitant]
     Active Substance: ASPIRIN
     Dosage: ONE LOSE DOSE A DAY BY MOUTH
  8. METOPROLOL. [Concomitant]
     Active Substance: METOPROLOL
     Dosage: ONE A DAY BY MOUTH
  9. AMLODIPINE [Concomitant]
     Active Substance: AMLODIPINE BESYLATE
     Dosage: ONE A DAY BY MOUTH
  10. IBRANCE [Suspect]
     Active Substance: PALBOCICLIB
     Dates: start: 201811
  11. XANAX [Concomitant]
     Active Substance: ALPRAZOLAM
     Dosage: PRN
     Route: 048
     Dates: start: 2013
  12. RADIATION [Suspect]
     Active Substance: RADIATION THERAPY
     Dates: start: 2013
  13. LETROZOLE. [Suspect]
     Active Substance: LETROZOLE
     Dosage: 2.5MG TABLET BY MOUTH EVERYDAY
     Dates: start: 20180718
  14. OMEPRAZOLE. [Concomitant]
     Active Substance: OMEPRAZOLE
     Dosage: ONCE A DAY BY MOUTH
  15. LISINOPRIL. [Concomitant]
     Active Substance: LISINOPRIL
     Dosage: ONE A DAY BY MOUTH
  16. OXYCODONE [Concomitant]
     Active Substance: OXYCODONE
     Dosage: PRN FOR BREAKTHROUGH PAIN
     Route: 048
     Dates: start: 2013
  17. NAPROXEN. [Concomitant]
     Active Substance: NAPROXEN
     Dosage: ONE A NIGHT FOR PAIN BY MOUTH
  18. FASLODEX [Suspect]
     Active Substance: FULVESTRANT
     Dosage: UNK
     Dates: start: 201308, end: 201806

REACTIONS (4)
  - Hot flush [Not Recovered/Not Resolved]
  - Amnesia [Unknown]
  - Balance disorder [Unknown]
  - Disease progression [Unknown]

NARRATIVE: CASE EVENT DATE: 2013
